FAERS Safety Report 11608166 (Version 1)
Quarter: 2015Q4

REPORT INFORMATION
  Report Type: Report from Study
  Country: US (occurrence: GB)
  Receive Date: 20151007
  Receipt Date: 20151007
  Transmission Date: 20160304
  Serious: Yes (Hospitalization)
  Sender: FDA-Public Use
  Company Number: GB-FRI-1000080108

PATIENT
  Sex: Female

DRUGS (4)
  1. CODEINE [Concomitant]
     Active Substance: CODEINE
     Dosage: 30-60 MG
     Route: 048
     Dates: start: 20150925
  2. ONDANSETRON [Concomitant]
     Active Substance: ONDANSETRON
     Dosage: 4-8 MG
     Dates: start: 20150925
  3. LINACLOTIDE [Suspect]
     Active Substance: LINACLOTIDE
     Dates: start: 20150612
  4. DEPO-PROVERA [Concomitant]
     Active Substance: MEDROXYPROGESTERONE ACETATE
     Dosage: 150 MG
     Route: 030
     Dates: start: 20150925

REACTIONS (1)
  - Abortion spontaneous [Unknown]
